FAERS Safety Report 15179998 (Version 2)
Quarter: 2018Q3

REPORT INFORMATION
  Report Type: Spontaneous
  Country: US (occurrence: US)
  Receive Date: 20180723
  Receipt Date: 20180815
  Transmission Date: 20181010
  Serious: No
  Sender: FDA-Public Use
  Company Number: US-PFIZER INC-2018289282

PATIENT
  Age: 73 Year
  Sex: Female
  Weight: 65.77 kg

DRUGS (2)
  1. COLESTIPOL HCL [Suspect]
     Active Substance: COLESTIPOL HYDROCHLORIDE
     Dosage: 2.5 G, 1X/DAY ((TAKEN HALF OF THE PACKET OF GRANULES, ONCE DAILY)
     Route: 048
  2. COLESTIPOL HCL [Suspect]
     Active Substance: COLESTIPOL HYDROCHLORIDE
     Indication: BLOOD CHOLESTEROL INCREASED
     Dosage: 5 G, 1X/DAY
     Route: 048

REACTIONS (5)
  - Dysphonia [Unknown]
  - Drug effect incomplete [Unknown]
  - Muscle spasms [Unknown]
  - Foreign body in respiratory tract [Recovered/Resolved with Sequelae]
  - Intentional product misuse [Unknown]

NARRATIVE: CASE EVENT DATE: 20180712
